FAERS Safety Report 5907524-6 (Version None)
Quarter: 2008Q4

REPORT INFORMATION
  Report Type: 
  Country: None (occurrence: None)
  Receive Date: 20081003
  Receipt Date: 20080924
  Transmission Date: 20090506
  Serious: Yes (Death, Other)
  Sender: FDA-Public Use
  Company Number: DE-JNJFOC-20080705676

PATIENT
  Age: 42 Year
  Sex: Female

DRUGS (7)
  1. REMICADE [Suspect]
     Indication: ANKYLOSING SPONDYLITIS
     Route: 042
  2. METHOTREXATE [Concomitant]
  3. METHOTREXATE [Concomitant]
     Indication: ANKYLOSING SPONDYLITIS
  4. ARAVA [Concomitant]
     Indication: ANKYLOSING SPONDYLITIS
  5. TRAMADOL HCL [Concomitant]
     Indication: ANKYLOSING SPONDYLITIS
  6. PRESNISOLONE [Concomitant]
  7. FOLATE [Concomitant]
     Indication: FOLATE DEFICIENCY

REACTIONS (3)
  - ASPIRATION [None]
  - CARDIOMYOPATHY [None]
  - VOMITING [None]
